FAERS Safety Report 15639385 (Version 1)
Quarter: 2018Q4

REPORT INFORMATION
  Report Type: Spontaneous
  Country: US (occurrence: US)
  Receive Date: 20181120
  Receipt Date: 20181120
  Transmission Date: 20190205
  Serious: No
  Sender: FDA-Public Use
  Company Number: US-ETHYPHARM USA CORP.-2018-EY-BP-US-00027

PATIENT
  Sex: Male

DRUGS (2)
  1. ANTIDEPRESSANTS [Interacting]
     Active Substance: UNSPECIFIED INGREDIENT
     Indication: PRODUCT USED FOR UNKNOWN INDICATION
  2. BUPRENORPHINE HYDROCHLORIDE. [Suspect]
     Active Substance: BUPRENORPHINE HYDROCHLORIDE
     Indication: PRODUCT USED FOR UNKNOWN INDICATION
     Dosage: UNK
     Route: 065

REACTIONS (3)
  - Drug ineffective [Recovered/Resolved]
  - Drug interaction [Recovered/Resolved]
  - Product taste abnormal [Unknown]
